FAERS Safety Report 10345243 (Version 2)
Quarter: 2014Q3

REPORT INFORMATION
  Report Type: Spontaneous
  Country: US (occurrence: US)
  Receive Date: 20140728
  Receipt Date: 20140728
  Transmission Date: 20150326
  Serious: Yes (Other)
  Sender: FDA-Public Use
  Company Number: US-AMGEN-USASP2014049100

PATIENT
  Age: 56 Year
  Sex: Female

DRUGS (5)
  1. ENBREL [Suspect]
     Active Substance: ETANERCEPT
     Indication: PSORIATIC ARTHROPATHY
     Dosage: UNK
     Route: 065
     Dates: start: 2002
  2. ENBREL [Suspect]
     Active Substance: ETANERCEPT
     Indication: PSORIASIS
  3. CIMZIA [Suspect]
     Active Substance: CERTOLIZUMAB PEGOL
     Indication: PRODUCT USED FOR UNKNOWN INDICATION
     Dosage: UNK
     Route: 065
  4. METHOTREXATE [Concomitant]
     Active Substance: METHOTREXATE
     Dosage: UNK
  5. HUMIRA [Suspect]
     Active Substance: ADALIMUMAB
     Indication: PRODUCT USED FOR UNKNOWN INDICATION
     Dosage: UNK
     Route: 065

REACTIONS (20)
  - Bone swelling [Not Recovered/Not Resolved]
  - Headache [Recovered/Resolved]
  - Nausea [Recovered/Resolved]
  - Migraine [Unknown]
  - Drug effect incomplete [Unknown]
  - Urinary tract infection [Unknown]
  - Inflammatory bowel disease [Recovered/Resolved]
  - Local swelling [Not Recovered/Not Resolved]
  - Pain [Unknown]
  - Influenza [Recovered/Resolved]
  - Feeling abnormal [Unknown]
  - Crohn^s disease [Recovered/Resolved]
  - Malaise [Recovered/Resolved]
  - Bone pain [Not Recovered/Not Resolved]
  - Weight decreased [Recovered/Resolved]
  - Finger deformity [Not Recovered/Not Resolved]
  - Neck pain [Not Recovered/Not Resolved]
  - Adverse event [Recovered/Resolved]
  - Ill-defined disorder [Not Recovered/Not Resolved]
  - Back pain [Unknown]
